FAERS Safety Report 17528081 (Version 2)
Quarter: 2020Q2

REPORT INFORMATION
  Report Type: Report from Study
  Country: US (occurrence: US)
  Receive Date: 20200311
  Receipt Date: 20200409
  Transmission Date: 20200713
  Serious: Yes (Other)
  Sender: FDA-Public Use
  Company Number: US-GILEAD-2019-0435032

PATIENT
  Age: 59 Year
  Sex: Female

DRUGS (5)
  1. AMBRISENTAN [Suspect]
     Active Substance: AMBRISENTAN
     Indication: PRODUCT USED FOR UNKNOWN INDICATION
     Dosage: 10 MG, QD
     Route: 048
     Dates: start: 20191216
  2. UPTRAVI [Concomitant]
     Active Substance: SELEXIPAG
     Dosage: 1000 UG AM AND 1200 UG PM
     Dates: start: 20191229
  3. UPTRAVI [Concomitant]
     Active Substance: SELEXIPAG
     Dosage: 1400 UG AM AND 1600 UG PM
     Dates: start: 20191229
  4. UPTRAVI [Concomitant]
     Active Substance: SELEXIPAG
     Dosage: 1200 UG AM AND 1400 UG PM
     Dates: start: 20191229
  5. UPTRAVI [Concomitant]
     Active Substance: SELEXIPAG
     Dosage: 1000 UG
     Dates: end: 20191228

REACTIONS (16)
  - Ear discomfort [Unknown]
  - Abdominal discomfort [Unknown]
  - Pain in extremity [Unknown]
  - Heart rate increased [Unknown]
  - Unevaluable event [Unknown]
  - Oedema peripheral [Unknown]
  - Paranasal sinus discomfort [Not Recovered/Not Resolved]
  - Epistaxis [Not Recovered/Not Resolved]
  - Intentional dose omission [Unknown]
  - Pain [Unknown]
  - Pyrexia [Unknown]
  - Headache [Not Recovered/Not Resolved]
  - Back pain [Unknown]
  - Cough [Not Recovered/Not Resolved]
  - Chest pain [Unknown]
  - Influenza [Recovering/Resolving]

NARRATIVE: CASE EVENT DATE: 20200104
